FAERS Safety Report 13789273 (Version 1)
Quarter: 2017Q3

REPORT INFORMATION
  Report Type: Spontaneous
  Country: DE (occurrence: DE)
  Receive Date: 20170725
  Receipt Date: 20170725
  Transmission Date: 20171127
  Serious: Yes (Other)
  Sender: FDA-Public Use
  Company Number: DE-JNJFOC-20170625033

PATIENT
  Age: 69 Year
  Sex: Male

DRUGS (4)
  1. HALDOL [Suspect]
     Active Substance: HALOPERIDOL
     Indication: SCHIZOPHRENIA
     Route: 065
  2. HALDOL [Suspect]
     Active Substance: HALOPERIDOL
     Indication: SCHIZOPHRENIA
     Route: 048
  3. TAVOR (LORAZEPAM) [Concomitant]
     Active Substance: LORAZEPAM
     Route: 065
  4. HALDOL DECANOATE [Suspect]
     Active Substance: HALOPERIDOL DECANOATE
     Indication: SCHIZOPHRENIA
     Route: 030

REACTIONS (9)
  - Mucous membrane disorder [Unknown]
  - Choking sensation [Unknown]
  - Cerebral atrophy [Unknown]
  - Dysphagia [Unknown]
  - Wheezing [Unknown]
  - Parkinsonism [Unknown]
  - Cough [Unknown]
  - Off label use [Unknown]
  - Incorrect dose administered [Unknown]

NARRATIVE: CASE EVENT DATE: 2014
